FAERS Safety Report 5713918-4 (Version None)
Quarter: 2008Q1

REPORT INFORMATION
  Report Type: 
  Country: None (occurrence: None)
  Receive Date: 20080205
  Receipt Date: 20080205
  Transmission Date: 20080703
  Serious: Yes (Death)
  Sender: FDA-Public Use
  Company Number: None

PATIENT
  Age: 6 Month
  Sex: Female
  Weight: 5.07 kg

DRUGS (3)
  1. ISONIAZID [Suspect]
     Indication: ANTIBIOTIC PROPHYLAXIS
     Dosage: 100 MILLIGRAMS DAILY PO
     Route: 048
     Dates: start: 20071004, end: 20080103
  2. SULFAMETHOXAZOLE AND TRIMETHOPRIM [Suspect]
     Indication: ANTIFUNGAL PROPHYLAXIS
     Dosage: 3 MILLILITERS DAILY PO
     Route: 048
     Dates: start: 20070831, end: 20080103
  3. AMOXICILLIN [Concomitant]

REACTIONS (9)
  - CHEST X-RAY ABNORMAL [None]
  - DEHYDRATION [None]
  - DISEASE COMPLICATION [None]
  - ECZEMA [None]
  - GASTROENTERITIS [None]
  - HIV INFECTION [None]
  - PULMONARY TUBERCULOSIS [None]
  - TONSILLITIS [None]
  - UPPER RESPIRATORY TRACT INFECTION [None]
